FAERS Safety Report 8078414-0 (Version None)
Quarter: 2012Q1

REPORT INFORMATION
  Report Type: 
  Country: None (occurrence: None)
  Receive Date: 20120123
  Receipt Date: 20120118
  Transmission Date: 20120608
  Serious: Yes (Other)
  Sender: FDA-Public Use
  Company Number: SP05478

PATIENT
  Age: 60 Year
  Sex: Female

DRUGS (4)
  1. LISINOPRIL [Suspect]
     Indication: BLOOD PRESSURE INCREASED
     Dates: end: 20120117
  2. SPIRONOLACTONE [Concomitant]
  3. LASIX [Concomitant]
  4. XIFAXAN [Suspect]
     Indication: HEPATIC ENCEPHALOPATHY
     Dosage: 1100 MG (550 MG,2 IN 1 D),ORAL
     Route: 048
     Dates: start: 20110101, end: 20120117

REACTIONS (2)
  - BLOOD PRESSURE INCREASED [None]
  - RENAL IMPAIRMENT [None]
